FAERS Safety Report 6249461-6 (Version None)
Quarter: 2009Q2

REPORT INFORMATION
  Report Type: 
  Country: None (occurrence: None)
  Receive Date: 20090629
  Receipt Date: 20090622
  Transmission Date: 20091009
  Serious: Yes (Congenital Anomaly)
  Sender: FDA-Public Use
  Company Number: A0793827A

PATIENT
  Sex: Male

DRUGS (2)
  1. PAXIL CR [Suspect]
     Indication: DRUG USE FOR UNKNOWN INDICATION
     Dates: start: 20061208, end: 20070101
  2. PAROXETINE HCL [Suspect]
     Indication: DRUG USE FOR UNKNOWN INDICATION
     Dates: start: 20070324

REACTIONS (2)
  - DRUG EXPOSURE DURING PREGNANCY [None]
  - TRANSPOSITION OF THE GREAT VESSELS [None]
